FAERS Safety Report 17902220 (Version 1)
Quarter: 2020Q2

REPORT INFORMATION
  Report Type: Spontaneous
  Country: CA (occurrence: CA)
  Receive Date: 20200616
  Receipt Date: 20200616
  Transmission Date: 20200714
  Serious: Yes (Disabling, Other)
  Sender: FDA-Public Use
  Company Number: CA-COVIS PHARMA B.V.-2020COV00246

PATIENT
  Age: 50 Year
  Sex: Female

DRUGS (5)
  1. VITAMIN B12 [Concomitant]
     Active Substance: CYANOCOBALAMIN
     Dosage: 1000 IU, 1X/DAY
  2. ALVESCO [Suspect]
     Active Substance: CICLESONIDE
     Dosage: 200 ?G, 1X/DAY
     Route: 055
     Dates: start: 20200529
  3. ALVESCO [Suspect]
     Active Substance: CICLESONIDE
     Dosage: 200 ?G, 1X/DAY
     Route: 055
     Dates: start: 20200515, end: 20200521
  4. VITAMIN D [Concomitant]
     Active Substance: VITAMIN D NOS
     Dosage: 1000 IU, 1X/DAY
  5. ALVESCO [Suspect]
     Active Substance: CICLESONIDE
     Indication: ASTHMA
     Dosage: 200 ?G, 1X/DAY
     Route: 055
     Dates: start: 2014

REACTIONS (6)
  - Product taste abnormal [Unknown]
  - Axillary pain [Recovered/Resolved]
  - Dyspepsia [Not Recovered/Not Resolved]
  - Paraesthesia [Recovered/Resolved]
  - Chest pain [Recovered/Resolved]
  - Diarrhoea [Unknown]

NARRATIVE: CASE EVENT DATE: 20200515
